FAERS Safety Report 12523745 (Version 12)
Quarter: 2019Q1

REPORT INFORMATION
  Report Type: Report from Study
  Country: BE (occurrence: BE)
  Receive Date: 20160704
  Receipt Date: 20190315
  Transmission Date: 20190417
  Serious: Yes (Hospitalization)
  Sender: FDA-Public Use
  Company Number: BE-ROCHE-1786381

PATIENT
  Age: 71 Year
  Sex: Male

DRUGS (58)
  1. ACP-196 [Suspect]
     Active Substance: ACALABRUTINIB
     Route: 048
     Dates: start: 20160920, end: 20161011
  2. PERFUSALGAN [Concomitant]
     Active Substance: ACETAMINOPHEN
     Route: 065
     Dates: start: 20161012, end: 20161012
  3. SOLU-MEDROL [Concomitant]
     Active Substance: METHYLPREDNISOLONE SODIUM SUCCINATE
     Dosage: BEFORE EVERY OBINUTUZUMAB ADMINISTRATION
     Route: 065
     Dates: start: 20160622, end: 20160622
  4. SOLU-MEDROL [Concomitant]
     Active Substance: METHYLPREDNISOLONE SODIUM SUCCINATE
     Dosage: BEFORE EVERY OBINUTUZUMAB ADMINISTRATION
     Route: 065
     Dates: start: 20160706, end: 20160706
  5. STAURODORM [Concomitant]
     Indication: INSOMNIA
     Route: 065
     Dates: start: 20121004, end: 20160523
  6. VALACICLOVIR [Concomitant]
     Active Substance: VALACYCLOVIR HYDROCHLORIDE
     Route: 065
     Dates: start: 20161103, end: 20161110
  7. DEPO-MEDROL [Concomitant]
     Active Substance: METHYLPREDNISOLONE ACETATE
     Dosage: 1 INJECTION ONCE TIME ONLY
     Route: 065
     Dates: start: 20161222, end: 20161222
  8. ACP-196 [Suspect]
     Active Substance: ACALABRUTINIB
     Indication: CHRONIC LYMPHOCYTIC LEUKAEMIA
     Dosage: RECEIVED FIRST DOSE AT 10:20
     Route: 048
     Dates: start: 20160524, end: 20160621
  9. ACP-196 [Suspect]
     Active Substance: ACALABRUTINIB
     Route: 048
     Dates: start: 20160817, end: 20160913
  10. ZOLPIDEM [Concomitant]
     Active Substance: ZOLPIDEM\ZOLPIDEM TARTRATE
     Dosage: PREVENTION INSOMNIA
     Route: 065
     Dates: start: 20160524, end: 20170426
  11. PERFUSALGAN [Concomitant]
     Active Substance: ACETAMINOPHEN
     Route: 065
     Dates: start: 20160623, end: 20160623
  12. PERFUSALGAN [Concomitant]
     Active Substance: ACETAMINOPHEN
     Route: 065
     Dates: start: 20161109, end: 20161109
  13. SOLU-MEDROL [Concomitant]
     Active Substance: METHYLPREDNISOLONE SODIUM SUCCINATE
     Dosage: BEFORE EVERY OBINUTUZUMAB ADMINISTRATION
     Route: 065
     Dates: start: 20160720, end: 20160720
  14. SOLU-MEDROL [Concomitant]
     Active Substance: METHYLPREDNISOLONE SODIUM SUCCINATE
     Dosage: BEFORE EVERY OBINUTUZUMAB ADMINISTRATION
     Route: 065
     Dates: start: 20160817, end: 20160817
  15. SOLU-MEDROL [Concomitant]
     Active Substance: METHYLPREDNISOLONE SODIUM SUCCINATE
     Dosage: BEFORE EVERY OBINUTUZUMAB ADMINISTRATION
     Route: 065
     Dates: start: 20161012, end: 20161012
  16. TAVEGYL [Concomitant]
     Active Substance: CLEMASTINE FUMARATE
     Dosage: BEFORE EVERY OBINUTUZUMAB ADMINISTRATION
     Route: 065
     Dates: start: 20160623, end: 20160623
  17. DAFALGAN [Concomitant]
     Active Substance: ACETAMINOPHEN
     Indication: INFUSION RELATED REACTION
     Route: 065
     Dates: start: 20160601, end: 20180104
  18. UNI DIAMICRON [Concomitant]
     Active Substance: GLICLAZIDE
     Indication: TYPE 2 DIABETES MELLITUS
     Route: 065
     Dates: start: 2002
  19. ZOPICLONE [Concomitant]
     Active Substance: ZOPICLONE
     Dosage: PREVENTION INSOMNIA
     Route: 065
     Dates: start: 20170427, end: 20180311
  20. ZOPICLONE [Concomitant]
     Active Substance: ZOPICLONE
     Dosage: PREVENTION INSOMNIA
     Route: 065
     Dates: start: 20180312
  21. OBINUTUZUMAB. [Suspect]
     Active Substance: OBINUTUZUMAB
     Route: 042
     Dates: start: 20160623, end: 20160623
  22. CIPROXIN [Concomitant]
     Active Substance: CIPROFLOXACIN
     Indication: PROSTATITIS
     Route: 065
     Dates: start: 20160427, end: 20160517
  23. INEGY [Concomitant]
     Active Substance: EZETIMIBE\SIMVASTATIN
     Indication: HYPERLIPIDAEMIA
     Dosage: 10/80 MG
     Route: 065
     Dates: start: 2006
  24. PERFUSALGAN [Concomitant]
     Active Substance: ACETAMINOPHEN
     Dosage: BEFORE EVERY OBINUTUZUMAB ADMINISTRATION
     Route: 065
     Dates: start: 20160622, end: 20160622
  25. PERFUSALGAN [Concomitant]
     Active Substance: ACETAMINOPHEN
     Route: 065
     Dates: start: 20160720, end: 20160720
  26. PERFUSALGAN [Concomitant]
     Active Substance: ACETAMINOPHEN
     Route: 065
     Dates: start: 20160817, end: 20160817
  27. SOLU-MEDROL [Concomitant]
     Active Substance: METHYLPREDNISOLONE SODIUM SUCCINATE
     Dosage: BEFORE EVERY OBINUTUZUMAB ADMINISTRATION
     Route: 065
     Dates: start: 20160623, end: 20160623
  28. TAVEGYL [Concomitant]
     Active Substance: CLEMASTINE FUMARATE
     Dosage: BEFORE EVERY OBINUTUZUMAB ADMINISTRATION
     Route: 065
     Dates: start: 20160706, end: 20160706
  29. TAVEGYL [Concomitant]
     Active Substance: CLEMASTINE FUMARATE
     Dosage: BEFORE EVERY OBINUTUZUMAB ADMINISTRATION
     Route: 065
     Dates: start: 20160817, end: 20160817
  30. DEPO-MEDROL [Concomitant]
     Active Substance: METHYLPREDNISOLONE ACETATE
     Dosage: 1 INJECTION ONCE TIME ONLY
     Route: 065
     Dates: start: 20170112, end: 20170112
  31. OBINUTUZUMAB. [Suspect]
     Active Substance: OBINUTUZUMAB
     Route: 042
     Dates: start: 20160720, end: 20160720
  32. ACP-196 [Suspect]
     Active Substance: ACALABRUTINIB
     Route: 048
     Dates: start: 20160914, end: 20160918
  33. SOLU-MEDROL [Concomitant]
     Active Substance: METHYLPREDNISOLONE SODIUM SUCCINATE
     Dosage: BEFORE EVERY OBINUTUZUMAB ADMINISTRATION
     Route: 065
     Dates: start: 20160914, end: 20160914
  34. ACP-196 [Suspect]
     Active Substance: ACALABRUTINIB
     Route: 048
     Dates: start: 20160919, end: 20160919
  35. METFORMIN [Concomitant]
     Active Substance: METFORMIN HYDROCHLORIDE
     Indication: TYPE 2 DIABETES MELLITUS
     Route: 065
     Dates: start: 2002
  36. TAVEGYL [Concomitant]
     Active Substance: CLEMASTINE FUMARATE
     Dosage: BEFORE EVERY OBINUTUZUMAB ADMINISTRATION
     Route: 065
     Dates: start: 20161012, end: 20161012
  37. DAFALGAN [Concomitant]
     Active Substance: ACETAMINOPHEN
     Indication: MYALGIA
     Dosage: OBINUTUZUMAB INFUSION REACTION
     Route: 065
     Dates: start: 20160622, end: 20160622
  38. ACP-196 [Suspect]
     Active Substance: ACALABRUTINIB
     Route: 048
     Dates: start: 20160624, end: 20160624
  39. ZANTAC [Concomitant]
     Active Substance: RANITIDINE HYDROCHLORIDE
     Indication: BARRETT^S OESOPHAGUS
     Route: 065
     Dates: start: 20160524, end: 20160626
  40. RAMIPRIL. [Concomitant]
     Active Substance: RAMIPRIL
     Indication: HYPERTENSION
     Route: 065
     Dates: start: 2006, end: 20160706
  41. TAVEGYL [Concomitant]
     Active Substance: CLEMASTINE FUMARATE
     Dosage: BEFORE EVERY OBINUTUZUMAB ADMINISTRATION
     Route: 065
     Dates: start: 20161109, end: 20161109
  42. MATRIFEN [Concomitant]
     Active Substance: FENTANYL
     Indication: HERPES ZOSTER
     Route: 065
     Dates: start: 20161104, end: 20161113
  43. REDOMEX [Concomitant]
     Active Substance: AMITRIPTYLINE HYDROCHLORIDE
     Indication: HERPES ZOSTER
     Route: 065
     Dates: start: 20161020, end: 20161110
  44. OBINUTUZUMAB. [Suspect]
     Active Substance: OBINUTUZUMAB
     Route: 042
     Dates: start: 20161109, end: 20161109
  45. ZANTAC [Concomitant]
     Active Substance: RANITIDINE HYDROCHLORIDE
     Route: 065
     Dates: start: 20160627, end: 201610
  46. PERFUSALGAN [Concomitant]
     Active Substance: ACETAMINOPHEN
     Route: 065
     Dates: start: 20160706, end: 20160706
  47. TAVEGYL [Concomitant]
     Active Substance: CLEMASTINE FUMARATE
     Dosage: BEFORE EVERY OBINUTUZUMAB ADMINISTRATION
     Route: 065
     Dates: start: 20160622, end: 20160622
  48. TAVEGYL [Concomitant]
     Active Substance: CLEMASTINE FUMARATE
     Dosage: BEFORE EVERY OBINUTUZUMAB ADMINISTRATION
     Route: 065
     Dates: start: 20160914, end: 20160914
  49. VALACICLOVIR [Concomitant]
     Active Substance: VALACYCLOVIR HYDROCHLORIDE
     Indication: HERPES ZOSTER
     Route: 065
     Dates: start: 20161020, end: 20161102
  50. OBINUTUZUMAB. [Suspect]
     Active Substance: OBINUTUZUMAB
     Indication: CHRONIC LYMPHOCYTIC LEUKAEMIA
     Route: 042
     Dates: start: 20160622, end: 20160622
  51. OBINUTUZUMAB. [Suspect]
     Active Substance: OBINUTUZUMAB
     Route: 042
     Dates: start: 20160706, end: 20160706
  52. ACP-196 [Suspect]
     Active Substance: ACALABRUTINIB
     Route: 048
     Dates: start: 20160622, end: 20160623
  53. ACP-196 [Suspect]
     Active Substance: ACALABRUTINIB
     Route: 048
     Dates: start: 20160625, end: 20160705
  54. ACP-196 [Suspect]
     Active Substance: ACALABRUTINIB
     Route: 048
     Dates: start: 20160706, end: 20160719
  55. ACP-196 [Suspect]
     Active Substance: ACALABRUTINIB
     Route: 048
     Dates: start: 20160720, end: 20160816
  56. PANTOMED (PANTOPRAZOLE) [Concomitant]
     Active Substance: PANTOPRAZOLE
     Indication: BARRETT^S OESOPHAGUS
     Route: 065
     Dates: start: 2007, end: 20160523
  57. PERFUSALGAN [Concomitant]
     Active Substance: ACETAMINOPHEN
     Route: 065
     Dates: start: 20160914, end: 20160914
  58. TAVEGYL [Concomitant]
     Active Substance: CLEMASTINE FUMARATE
     Dosage: BEFORE EVERY OBINUTUZUMAB ADMINISTRATION
     Route: 065
     Dates: start: 20160720, end: 20160720

REACTIONS (3)
  - Hepatitis toxic [Recovered/Resolved]
  - Benign prostatic hyperplasia [Recovered/Resolved]
  - Urinary retention postoperative [Recovered/Resolved]

NARRATIVE: CASE EVENT DATE: 20160627
